FAERS Safety Report 7549706-6 (Version None)
Quarter: 2011Q2

REPORT INFORMATION
  Report Type: 
  Country: None (occurrence: None)
  Receive Date: 20110615
  Receipt Date: 20110531
  Transmission Date: 20111010
  Serious: Yes (Hospitalization)
  Sender: FDA-Public Use
  Company Number: DE-JNJFOC-20110600696

PATIENT
  Age: 35 Year
  Sex: Male

DRUGS (2)
  1. AZATHIOPRINE [Concomitant]
  2. REMICADE [Suspect]
     Indication: CROHN'S DISEASE
     Route: 042

REACTIONS (3)
  - SALMONELLA SEPSIS [None]
  - CLOSTRIDIAL INFECTION [None]
  - CHOLECYSTITIS [None]
